FAERS Safety Report 9651543 (Version 1)
Quarter: 2013Q4

REPORT INFORMATION
  Report Type: Spontaneous
  Country: US (occurrence: US)
  Receive Date: 20131029
  Receipt Date: 20131029
  Transmission Date: 20140711
  Serious: No
  Sender: FDA-Public Use
  Company Number: US-BIOGENIDEC-2013BI072594

PATIENT
  Age: 51 Year
  Sex: Female

DRUGS (6)
  1. TECFIDERA [Suspect]
     Indication: MULTIPLE SCLEROSIS
     Route: 048
     Dates: start: 20130520
  2. ANTACID EXTRA STRENGTH [Concomitant]
  3. OXYCODONE-ACETAMINOPHEN [Concomitant]
  4. LOSARTAN [Concomitant]
  5. POTASSIUM [Concomitant]
  6. ESCITALOPRAM OXALATE [Concomitant]

REACTIONS (2)
  - Pruritus [Unknown]
  - Muscle spasms [Unknown]
